FAERS Safety Report 8742440 (Version 2)
Quarter: 2012Q4

REPORT INFORMATION
  Report Type: 
  Country: US (occurrence: US)
  Receive Date: 20120824
  Receipt Date: 20121017
  Transmission Date: 20130627
  Serious: Yes (Hospitalization)
  Sender: FDA-Public Use
  Company Number: US-US-EMD SERONO, INC.-7125213

PATIENT
  Sex: Female
  Weight: 82 kg

DRUGS (1)
  1. REBIF [Suspect]
     Indication: MULTIPLE SCLEROSIS
     Route: 058
     Dates: start: 20101022

REACTIONS (4)
  - Intervertebral disc protrusion [Recovering/Resolving]
  - Headache [Unknown]
  - Injection site erythema [Recovering/Resolving]
  - Injection site pain [Unknown]
